FAERS Safety Report 19952845 (Version 1)
Quarter: 2021Q4

REPORT INFORMATION
  Report Type: Spontaneous
  Country: US (occurrence: US)
  Receive Date: 20211010
  Receipt Date: 20211010
  Transmission Date: 20220303
  Serious: No
  Sender: FDA-Public Use
  Company Number: None

PATIENT
  Age: 65 Year
  Sex: Male
  Weight: 99.79 kg

DRUGS (6)
  1. LOTRIMIN AF ANTIFUNGAL [Suspect]
     Active Substance: MICONAZOLE NITRATE
     Indication: Tinea cruris
     Dosage: ?          QUANTITY:SPRAY;
     Route: 061
     Dates: start: 202108, end: 202108
  2. PROTONIX [Concomitant]
     Active Substance: PANTOPRAZOLE SODIUM
  3. ATORVASTATIN [Concomitant]
     Active Substance: ATORVASTATIN
  4. VENLAFAXINE [Concomitant]
     Active Substance: VENLAFAXINE HYDROCHLORIDE
  5. SYNTHROID [Concomitant]
     Active Substance: LEVOTHYROXINE SODIUM
  6. ASPIRIN [Concomitant]
     Active Substance: ASPIRIN

REACTIONS (6)
  - Recalled product administered [None]
  - Suspected product contamination [None]
  - Condition aggravated [None]
  - Application site erythema [None]
  - Application site pruritus [None]
  - Application site pain [None]

NARRATIVE: CASE EVENT DATE: 20210801
